FAERS Safety Report 11975714 (Version 1)
Quarter: 2016Q1

REPORT INFORMATION
  Report Type: Spontaneous
  Country: TW (occurrence: TW)
  Receive Date: 20160129
  Receipt Date: 20160129
  Transmission Date: 20160526
  Serious: Yes (Hospitalization, Other)
  Sender: FDA-Public Use
  Company Number: TW-AMGEN-TWNSP2015141321

PATIENT
  Sex: Female
  Weight: 1.56 kg

DRUGS (13)
  1. ENBREL [Suspect]
     Active Substance: ETANERCEPT
     Dosage: 50 MG, WEEKLY
     Route: 064
     Dates: start: 20150401, end: 20150515
  2. CELEBREX [Concomitant]
     Active Substance: CELECOXIB
     Route: 064
  3. CELEBREX [Concomitant]
     Active Substance: CELECOXIB
     Dosage: 200 MG, DAILY
     Route: 050
  4. PREDNISOLONE. [Concomitant]
     Active Substance: PREDNISOLONE
     Dosage: 5 MG, DAILY
     Route: 050
  5. PREDNISOLONE. [Concomitant]
     Active Substance: PREDNISOLONE
     Dosage: 5 MG, DAILY
     Route: 064
  6. CELEBREX [Concomitant]
     Active Substance: CELECOXIB
     Dosage: 200 MG, AS NEEDED
     Route: 050
  7. ENBREL [Suspect]
     Active Substance: ETANERCEPT
     Indication: MATERNAL EXPOSURE DURING PREGNANCY
     Dosage: 25 MG, 2X/WEEK
     Route: 064
     Dates: start: 20051026
  8. PREDNISOLONE. [Concomitant]
     Active Substance: PREDNISOLONE
     Dosage: 10 MG, DAILY
     Route: 064
  9. PREDNISOLONE. [Concomitant]
     Active Substance: PREDNISOLONE
     Dosage: 10 MG, DAILY
     Route: 050
  10. CELEBREX [Concomitant]
     Active Substance: CELECOXIB
     Route: 064
  11. MEDICON A [Concomitant]
     Dosage: 90 ML, 4X/DAY
     Route: 064
     Dates: start: 20151216, end: 20151219
  12. PLATYCODON GRANDIFLORUM [Concomitant]
     Dosage: 10 ML, 4X/DAY
     Route: 064
     Dates: start: 20151216, end: 20151219
  13. PLATYCODON EXTRACT [Concomitant]
     Dosage: 10 ML, 4X/DAY
     Route: 064
     Dates: start: 20151216, end: 20151219

REACTIONS (3)
  - Premature baby [Unknown]
  - Maternal exposure during pregnancy [Unknown]
  - Low birth weight baby [Recovered/Resolved]

NARRATIVE: CASE EVENT DATE: 20151217
